FAERS Safety Report 19665859 (Version 2)
Quarter: 2025Q3

REPORT INFORMATION
  Report Type: Report from Study
  Country: EU (occurrence: EU)
  Receive Date: 20210806
  Receipt Date: 20250711
  Transmission Date: 20251021
  Serious: Yes (Other)
  Sender: CELLTRION
  Company Number: EU-CELLTRION INC.-2021PT010182

PATIENT

DRUGS (3)
  1. RITUXIMAB [Suspect]
     Active Substance: RITUXIMAB
     Indication: Product used for unknown indication
     Route: 065
  2. POLATUZUMAB VEDOTIN [Suspect]
     Active Substance: POLATUZUMAB VEDOTIN
     Indication: Product used for unknown indication
     Route: 065
  3. BENDAMUSTINE [Suspect]
     Active Substance: BENDAMUSTINE
     Indication: Product used for unknown indication

REACTIONS (15)
  - Hypokalaemia [Unknown]
  - Leukopenia [Unknown]
  - Thrombocytopenia [Unknown]
  - Neutropenia [Unknown]
  - Anaemia [Unknown]
  - Renal failure [Unknown]
  - Hypophosphataemia [Unknown]
  - Ocular hyperaemia [Unknown]
  - Transaminases increased [Unknown]
  - Hypomagnesaemia [Unknown]
  - Rash maculo-papular [Unknown]
  - Depression [Unknown]
  - Tachycardia [Unknown]
  - Dyspepsia [Unknown]
  - Fatigue [Unknown]
